FAERS Safety Report 15283832 (Version 2)
Quarter: 2018Q3

REPORT INFORMATION
  Report Type: Report from Study
  Country: US (occurrence: US)
  Receive Date: 20180816
  Receipt Date: 20180920
  Transmission Date: 20181010
  Serious: Yes (Hospitalization, Other)
  Sender: FDA-Public Use
  Company Number: US-ROCHE-2167706

PATIENT
  Age: 53 Year
  Sex: Female
  Weight: 92.62 kg

DRUGS (22)
  1. OCRELIZUMAB. [Suspect]
     Active Substance: OCRELIZUMAB
     Indication: RELAPSING-REMITTING MULTIPLE SCLEROSIS
     Route: 042
     Dates: start: 20180115, end: 20180129
  2. ISOSULFAN BLUE. [Suspect]
     Active Substance: ISOSULFAN BLUE
     Indication: BREAST CONSERVING SURGERY
     Route: 065
     Dates: start: 20180904, end: 20180904
  3. CHLORTRIMETON [Concomitant]
     Active Substance: CHLORPHENIRAMINE MALEATE
     Dosage: PRN
     Route: 048
     Dates: start: 2012
  4. VITAMIN D3 [Concomitant]
     Active Substance: CHOLECALCIFEROL
     Dosage: 10,000 UNIT
     Route: 048
     Dates: start: 20120730
  5. BONINE [Concomitant]
     Active Substance: MECLIZINE HYDROCHLORIDE
     Dosage: PRN
     Route: 048
     Dates: start: 2012
  6. NORCO [Concomitant]
     Active Substance: ACETAMINOPHEN\HYDROCODONE BITARTRATE
     Indication: TENSION HEADACHE
     Dosage: 5?325 MG PRN
     Route: 048
     Dates: start: 20140505
  7. NORCO [Concomitant]
     Active Substance: ACETAMINOPHEN\HYDROCODONE BITARTRATE
     Indication: ARTHRALGIA
  8. PROVIGIL [Concomitant]
     Active Substance: MODAFINIL
     Indication: FATIGUE
     Route: 048
     Dates: start: 2010
  9. PAMELOR [Concomitant]
     Active Substance: NORTRIPTYLINE HYDROCHLORIDE
     Indication: TENSION HEADACHE
     Dosage: EVERY AFTERNOON OR EVENING
     Route: 048
     Dates: start: 20120828
  10. ACETAMINOPHEN. [Concomitant]
     Active Substance: ACETAMINOPHEN
     Dosage: PRN
     Route: 048
     Dates: start: 20180904, end: 20180905
  11. PRINIVIL [Concomitant]
     Active Substance: LISINOPRIL
     Indication: HYPERTENSION
     Route: 048
     Dates: start: 20170202
  12. VESICARE [Concomitant]
     Active Substance: SOLIFENACIN SUCCINATE
     Indication: NEUROGENIC BLADDER
     Route: 048
     Dates: start: 201205
  13. VITAMIN B COMPLEX [Concomitant]
     Active Substance: CYANOCOBALAMIN\DEXPANTHENOL\NIACINAMIDE\PYRIDOXINE HYDROCHLORIDE\RIBOFLAVIN 5^-PHOSPHATE SODIUM\THIAMINE HYDROCHLORIDE\VITAMIN B COMPLEX
     Indication: RESTLESS LEGS SYNDROME
     Route: 048
     Dates: start: 201407
  14. PRILOSEC [Concomitant]
     Active Substance: OMEPRAZOLE MAGNESIUM
     Route: 048
     Dates: start: 2012
  15. GABAPENTIN. [Concomitant]
     Active Substance: GABAPENTIN
     Route: 065
     Dates: start: 20180904
  16. OCRELIZUMAB. [Suspect]
     Active Substance: OCRELIZUMAB
     Route: 042
     Dates: start: 20180706
  17. MIRAPEX [Concomitant]
     Active Substance: PRAMIPEXOLE DIHYDROCHLORIDE
     Indication: RESTLESS LEGS SYNDROME
     Dosage: NIGHTLY
     Route: 048
     Dates: start: 20160609
  18. POTASSIUM CHLORIDE. [Concomitant]
     Active Substance: POTASSIUM CHLORIDE
     Dosage: 40?60 MEQ, PRN
     Route: 048
     Dates: start: 20180904, end: 20180905
  19. BENTYL [Concomitant]
     Active Substance: DICYCLOMINE HYDROCHLORIDE
     Indication: DIARRHOEA
     Dosage: PRN
     Route: 048
     Dates: start: 2012
  20. TROLAMINE SALICYLATE. [Concomitant]
     Active Substance: TROLAMINE SALICYLATE
     Indication: MUSCLE INJURY
     Dosage: PRN
     Route: 061
     Dates: start: 201610
  21. SCOPOLAMINE [Concomitant]
     Active Substance: SCOPOLAMINE
     Route: 065
     Dates: start: 20180904, end: 20180904
  22. BUPIVACAINE. [Concomitant]
     Active Substance: BUPIVACAINE
     Route: 058
     Dates: start: 20180904, end: 20180904

REACTIONS (2)
  - Breast cancer [Not Recovered/Not Resolved]
  - Anaphylactic reaction [Recovered/Resolved]

NARRATIVE: CASE EVENT DATE: 20180804
